FAERS Safety Report 5836242-8 (Version None)
Quarter: 2008Q3

REPORT INFORMATION
  Report Type: 
  Country: None (occurrence: None)
  Receive Date: 20080806
  Receipt Date: 20080806
  Transmission Date: 20090109
  Serious: Yes (Hospitalization)
  Sender: FDA-Public Use
  Company Number: None

PATIENT
  Sex: Male
  Weight: 1 kg

DRUGS (7)
  1. ZETIA [Suspect]
     Indication: HYPERCHOLESTEROLAEMIA
     Dosage: 10 MG PO
     Route: 048
     Dates: start: 20080703, end: 20080715
  2. JANUVIA [Concomitant]
  3. PLAVIX [Concomitant]
  4. ASPIRIN [Concomitant]
  5. CRESTOR [Concomitant]
  6. TOPROL-XL [Concomitant]
  7. VITAMIN TAB [Concomitant]

REACTIONS (3)
  - ANGIOEDEMA [None]
  - THERAPEUTIC RESPONSE DECREASED [None]
  - URTICARIA [None]
